FAERS Safety Report 22096139 (Version 1)
Quarter: 2023Q1

REPORT INFORMATION
  Report Type: Spontaneous
  Country: GB (occurrence: GB)
  Receive Date: 20230315
  Receipt Date: 20230315
  Transmission Date: 20230418
  Serious: No
  Sender: FDA-Public Use
  Company Number: None

PATIENT
  Age: 60 Year
  Sex: Female
  Weight: 79.6 kg

DRUGS (18)
  1. TOLVAPTAN [Suspect]
     Active Substance: TOLVAPTAN
     Indication: Congenital cystic kidney disease
     Dosage: 15 MILLIGRAMS, TABLET, (1DAY) QD (IN EVENING)
     Route: 048
     Dates: start: 20170912
  2. TOLVAPTAN [Suspect]
     Active Substance: TOLVAPTAN
     Dosage: 45 MILLIGRAMS, TABLET, (1DAY) QD (IN MORNING)
     Route: 048
     Dates: start: 20170912
  3. TOLVAPTAN [Suspect]
     Active Substance: TOLVAPTAN
     Dosage: 60 MILLIGRAMS, TABLET, (1DAY) QD (IN MORNING)
     Route: 048
     Dates: start: 20171003
  4. TOLVAPTAN [Suspect]
     Active Substance: TOLVAPTAN
     Dosage: 30 MILLIGRAMS, TABLET, QD (IN EVENING)
     Route: 048
     Dates: start: 20171003
  5. TOLVAPTAN [Suspect]
     Active Substance: TOLVAPTAN
     Dosage: 15 MILLIGRAMS, TABLET.
     Route: 048
     Dates: start: 20180215
  6. TOLVAPTAN [Suspect]
     Active Substance: TOLVAPTAN
     Dosage: 45 MILLIGRAMS, TABLET.
     Route: 048
     Dates: start: 20180215
  7. TOLVAPTAN [Suspect]
     Active Substance: TOLVAPTAN
     Dosage: 60 MILLIGRAMS, (UNK), TABLET.
     Route: 048
     Dates: start: 20180325
  8. TOLVAPTAN [Suspect]
     Active Substance: TOLVAPTAN
     Dosage: 30 MILLIGRAMS, (UNK), TABLET.
     Route: 048
     Dates: start: 20180325
  9. TOLVAPTAN [Suspect]
     Active Substance: TOLVAPTAN
     Dosage: 30 MILLIGRAMS, TABLET.
     Route: 048
     Dates: start: 20210706
  10. TOLVAPTAN [Suspect]
     Active Substance: TOLVAPTAN
     Dosage: 90 MILLIGRAMS, TABLET.
     Route: 048
     Dates: start: 20210706
  11. AMLODIPINE [Concomitant]
     Active Substance: AMLODIPINE BESYLATE
     Indication: Product used for unknown indication
     Dosage: 5 MILLIGRAMS, QD (PER DAY)
     Route: 048
     Dates: start: 20180814, end: 20200707
  12. ATENOLOL [Concomitant]
     Active Substance: ATENOLOL
     Indication: Product used for unknown indication
     Dosage: 25 MILLIGRAMS, QD (1DAY)
     Route: 048
     Dates: start: 20150521, end: 20230207
  13. ATORVASTATIN [Concomitant]
     Active Substance: ATORVASTATIN
     Indication: Product used for unknown indication
     Dosage: 10 MILLIGRAMS, QD (1 DAY)
     Route: 048
     Dates: start: 20101125
  14. AMOXICILLIN\CLAVULANATE POTASSIUM [Concomitant]
     Active Substance: AMOXICILLIN\CLAVULANATE POTASSIUM
     Indication: Product used for unknown indication
     Dosage: 1 DOSAGE FORM, TID
     Route: 048
     Dates: start: 20180126, end: 20180201
  15. IRBESARTAN [Concomitant]
     Active Substance: IRBESARTAN
     Indication: Product used for unknown indication
     Dosage: 150 MILLIGRAMS, QD (1DAY)
     Route: 048
     Dates: start: 20101125
  16. SENNA [Concomitant]
     Active Substance: SENNA LEAF\SENNOSIDES\SENNOSIDES A AND B
     Indication: Constipation
     Dosage: 2 DOSAGE FORM, PRN, (TABLET AS NEEDED)
     Route: 048
     Dates: start: 20170801
  17. SENOKOT [Concomitant]
     Active Substance: SENNOSIDES
     Indication: Constipation
     Dosage: 2 DOSAGE FORM, PRN (AS NEEDED)
     Route: 048
     Dates: start: 20170801
  18. TRAMADOL [Concomitant]
     Active Substance: TRAMADOL
     Indication: Pain
     Dosage: 50 MILLIGRAMS, PRN (AS NEEDED)
     Route: 048
     Dates: start: 20170801

REACTIONS (2)
  - Pollakiuria [Not Recovered/Not Resolved]
  - Thirst [Not Recovered/Not Resolved]

NARRATIVE: CASE EVENT DATE: 20170912
